FAERS Safety Report 5130514-0 (Version None)
Quarter: 2006Q4

REPORT INFORMATION
  Report Type: 
  Country: None (occurrence: None)
  Receive Date: 20061019
  Receipt Date: 20061017
  Transmission Date: 20070319
  Serious: Yes (Hospitalization)
  Sender: FDA-Public Use
  Company Number: IE-GLAXOSMITHKLINE-B0442671A

PATIENT
  Age: 84 Year
  Sex: Male

DRUGS (12)
  1. LANOXIN [Suspect]
     Indication: ATRIAL FIBRILLATION
     Dosage: 500MCG PER DAY
     Route: 048
  2. DURAGESIC-100 [Suspect]
     Indication: DRUG USE FOR UNKNOWN INDICATION
     Route: 062
     Dates: start: 20060821, end: 20060913
  3. NOVORAPID [Concomitant]
  4. PULMICORT [Concomitant]
     Route: 055
  5. BRICANYL TURBOHALER [Concomitant]
     Route: 055
  6. SOLPADEINE [Concomitant]
  7. LASIX [Concomitant]
  8. ELTROXIN [Concomitant]
  9. PERINDOPRIL ERBUMINE [Concomitant]
  10. NEXIUM [Concomitant]
  11. FYBOGEL ORANGE [Concomitant]
  12. LANTUS [Concomitant]

REACTIONS (8)
  - ANOREXIA [None]
  - BRADYCARDIA [None]
  - CONFUSIONAL STATE [None]
  - CONSTIPATION [None]
  - HALLUCINATION [None]
  - HYPOKALAEMIA [None]
  - RENAL IMPAIRMENT [None]
  - VOMITING [None]
